FAERS Safety Report 19272553 (Version 1)
Quarter: 2021Q2

REPORT INFORMATION
  Report Type: Spontaneous
  Country: FR (occurrence: FR)
  Receive Date: 20210518
  Receipt Date: 20210518
  Transmission Date: 20210717
  Serious: Yes (Death)
  Sender: FDA-Public Use
  Company Number: NVSC2021FR110734

PATIENT
  Age: 82 Year

DRUGS (1)
  1. FULVESTRANT. [Suspect]
     Active Substance: FULVESTRANT
     Indication: BREAST CANCER
     Dosage: 1 DF, CYCLIC
     Route: 030
     Dates: start: 20210322, end: 20210414

REACTIONS (1)
  - Dermatitis bullous [Fatal]

NARRATIVE: CASE EVENT DATE: 20210422
